FAERS Safety Report 9580290 (Version 1)
Quarter: 2013Q3

REPORT INFORMATION
  Report Type: Spontaneous
  Country: US (occurrence: None)
  Receive Date: 20130916
  Receipt Date: 20130916
  Transmission Date: 20140515
  Serious: Yes (Hospitalization, Other)
  Sender: FDA-Public Use
  Company Number: JPI-P-029602

PATIENT
  Age: 56 Year
  Sex: Female

DRUGS (2)
  1. XYREM [Suspect]
     Indication: NARCOLEPSY
     Dosage: 4.5 GM  (2.25 GM,  2 IN 1 D), ORAL
     Route: 048
     Dates: start: 20070912
  2. CLONAZEPAM (UNKNOWN) [Concomitant]

REACTIONS (3)
  - Drug withdrawal syndrome [None]
  - Anxiety [None]
  - Adverse event [None]
